FAERS Safety Report 13243772 (Version 1)
Quarter: 2017Q1

REPORT INFORMATION
  Report Type: Spontaneous
  Country: US (occurrence: US)
  Receive Date: 20170217
  Receipt Date: 20170217
  Transmission Date: 20170428
  Serious: No
  Sender: FDA-Public Use
  Company Number: US-NOVOPROD-506633

PATIENT
  Age: 73 Year
  Sex: Female

DRUGS (1)
  1. VICTOZA [Suspect]
     Active Substance: LIRAGLUTIDE
     Indication: PRODUCT USED FOR UNKNOWN INDICATION
     Dosage: LESS THAN 0.6 MG
     Route: 058

REACTIONS (4)
  - Palpitations [Unknown]
  - Tachycardia [Unknown]
  - Dizziness [Unknown]
  - Off label use [Unknown]
